FAERS Safety Report 4663800-9 (Version None)
Quarter: 2005Q2

REPORT INFORMATION
  Report Type: 
  Country: None (occurrence: None)
  Receive Date: 20050516
  Receipt Date: 20050507
  Transmission Date: 20051028
  Serious: Yes (Disabling)
  Sender: FDA-Public Use
  Company Number: 2005049209

PATIENT
  Age: 73 Year
  Sex: Female

DRUGS (6)
  1. LIPITOR [Suspect]
     Indication: HYPERCHOLESTEROLAEMIA
     Dosage: 10 MG (10 MG, 1 IN 1 D), ORAL
     Route: 048
     Dates: end: 20040503
  2. NADOLOL [Concomitant]
  3. HYDROCHLOROTHIAZIDE [Concomitant]
  4. NIZATIDINE [Concomitant]
  5. PROPACET 100 [Concomitant]
  6. LORAZEPAM [Concomitant]

REACTIONS (1)
  - POLYMYALGIA RHEUMATICA [None]
